FAERS Safety Report 5567072-2 (Version None)
Quarter: 2007Q4

REPORT INFORMATION
  Report Type: 
  Country: None (occurrence: None)
  Receive Date: 20071219
  Receipt Date: 20071219
  Transmission Date: 20080405
  Serious: Yes (Death, Life-Threatening, Hospitalization)
  Sender: FDA-Public Use
  Company Number: HQWYE018402FEB05

PATIENT
  Sex: Male
  Weight: 57 kg

DRUGS (10)
  1. RAPAMUNE [Suspect]
     Indication: PROPHYLAXIS AGAINST TRANSPLANT REJECTION
     Route: 048
     Dates: start: 20041228
  2. AMLODIPINE [Concomitant]
     Route: 048
     Dates: start: 20041110, end: 20050129
  3. METHYLDOPA [Concomitant]
     Route: 048
     Dates: start: 20041023, end: 20050129
  4. ENCORTON [Concomitant]
     Indication: PROPHYLAXIS AGAINST TRANSPLANT REJECTION
     Dosage: 15 MG (FREQUENCY NOT SPECIFIED)
  5. RANITIDINE HCL [Concomitant]
     Route: 048
     Dates: start: 20041028, end: 20050129
  6. CARVEDILOL [Concomitant]
     Route: 048
     Dates: start: 20041028, end: 20050129
  7. ACYCLOVIR [Concomitant]
     Route: 048
     Dates: start: 20041104, end: 20050129
  8. COTRIM [Concomitant]
     Route: 048
     Dates: start: 20041104, end: 20050129
  9. PROGRAF [Suspect]
     Indication: PROPHYLAXIS AGAINST TRANSPLANT REJECTION
     Route: 048
     Dates: start: 20041228
  10. CLONIDINE HYDROCHLORIDE [Concomitant]
     Route: 048
     Dates: start: 20041108, end: 20050129

REACTIONS (1)
  - ACUTE RESPIRATORY DISTRESS SYNDROME [None]
